FAERS Safety Report 22659850 (Version 4)
Quarter: 2025Q1

REPORT INFORMATION
  Report Type: Spontaneous
  Country: US (occurrence: US)
  Receive Date: 20230630
  Receipt Date: 20250324
  Transmission Date: 20250409
  Serious: Yes (Hospitalization)
  Sender: TRAVERE THERAPEUTICS
  Company Number: US-TRAVERE-2023TVT00262

PATIENT
  Age: 55 Year
  Sex: Male

DRUGS (28)
  1. FILSPARI [Suspect]
     Active Substance: SPARSENTAN
     Indication: IgA nephropathy
     Route: 048
     Dates: start: 202305
  2. FILSPARI [Suspect]
     Active Substance: SPARSENTAN
     Indication: Chronic kidney disease
     Route: 048
     Dates: start: 202307
  3. FILSPARI [Suspect]
     Active Substance: SPARSENTAN
     Indication: Proteinuria
  4. ALBUTEROL [Concomitant]
     Active Substance: ALBUTEROL
  5. ZYLOPRIM [Concomitant]
     Active Substance: ALLOPURINOL
  6. XANAX [Concomitant]
     Active Substance: ALPRAZOLAM
  7. NORVASC [Concomitant]
     Active Substance: AMLODIPINE BESYLATE
  8. ASPIRIN [Concomitant]
     Active Substance: ASPIRIN
  9. ASTELIN [Concomitant]
     Active Substance: AZELASTINE HYDROCHLORIDE
  10. SYMBICORT [Concomitant]
     Active Substance: BUDESONIDE\FORMOTEROL FUMARATE DIHYDRATE
  11. COREG [Concomitant]
     Active Substance: CARVEDILOL
  12. CYANOCOBALAMIN [Concomitant]
     Active Substance: CYANOCOBALAMIN
  13. DAPAGLIFLOZIN [Concomitant]
     Active Substance: DAPAGLIFLOZIN
  14. ERGOCALCIFEROL [Concomitant]
     Active Substance: ERGOCALCIFEROL
  15. ZETIA [Concomitant]
     Active Substance: EZETIMIBE
  16. TRILIPIX [Concomitant]
     Active Substance: FENOFIBRIC ACID
  17. LASIX [Concomitant]
     Active Substance: FUROSEMIDE
  18. VISTARIL [Concomitant]
     Active Substance: HYDROXYZINE PAMOATE
  19. METFORMIN [Concomitant]
     Active Substance: METFORMIN HYDROCHLORIDE
  20. REGLAN [Concomitant]
     Active Substance: METOCLOPRAMIDE HYDROCHLORIDE
  21. ZAROXOLYN [Concomitant]
     Active Substance: METOLAZONE
  22. VITAMINS [Concomitant]
     Active Substance: VITAMINS
  23. PRILOSEC [Concomitant]
     Active Substance: OMEPRAZOLE MAGNESIUM
  24. ZOFRAN [Concomitant]
     Active Substance: ONDANSETRON HYDROCHLORIDE
  25. POTASSIUM ORAL [Concomitant]
  26. LYRICA [Concomitant]
     Active Substance: PREGABALIN
  27. ROSUVASTATIN CALCIUM [Concomitant]
     Active Substance: ROSUVASTATIN CALCIUM
  28. AMBIEN CR [Concomitant]
     Active Substance: ZOLPIDEM TARTRATE

REACTIONS (3)
  - COVID-19 [Recovered/Resolved]
  - Acute kidney injury [Unknown]
  - Acute respiratory failure [Unknown]

NARRATIVE: CASE EVENT DATE: 20230619
